FAERS Safety Report 20316468 (Version 3)
Quarter: 2022Q1

REPORT INFORMATION
  Report Type: Report from Study
  Country: CO (occurrence: CO)
  Receive Date: 20220110
  Receipt Date: 20220202
  Transmission Date: 20220424
  Serious: Yes (Other)
  Sender: FDA-Public Use
  Company Number: CO-NOVARTISPH-NVSC2021CO174294

PATIENT
  Age: 73 Year
  Sex: Female
  Weight: 63 kg

DRUGS (9)
  1. KISQALI [Suspect]
     Active Substance: RIBOCICLIB
     Indication: Human epidermal growth factor receptor negative
     Dosage: 600 MG, QD, (STARTED APPROXIMATELY 3 MONTHS AGO)
     Route: 048
  2. KISQALI [Suspect]
     Active Substance: RIBOCICLIB
     Dosage: 600 MG, QD
     Route: 048
     Dates: start: 20210819
  3. KISQALI [Suspect]
     Active Substance: RIBOCICLIB
     Dosage: 3 DOSAGE FORM, QD
     Route: 048
  4. KISQALI [Suspect]
     Active Substance: RIBOCICLIB
     Dosage: UNK
     Route: 048
  5. KISQALI [Suspect]
     Active Substance: RIBOCICLIB
     Dosage: 600 MG, QD
     Route: 048
     Dates: start: 20210501
  6. FEMARA [Suspect]
     Active Substance: LETROZOLE
     Indication: Breast cancer
     Dosage: 2.5 MG, QD, APPROXIMATELY 3 MONTHS AGO
     Route: 048
  7. FEMARA [Suspect]
     Active Substance: LETROZOLE
     Dosage: 2.5 MG, QD
     Route: 048
     Dates: start: 20210819
  8. FEMARA [Suspect]
     Active Substance: LETROZOLE
     Dosage: UNK
     Route: 048
  9. FEMARA [Suspect]
     Active Substance: LETROZOLE
     Dosage: 2.5 MG, QD
     Route: 048
     Dates: start: 20210501

REACTIONS (39)
  - Syncope [Unknown]
  - Joint dislocation [Unknown]
  - Unevaluable event [Unknown]
  - Irritability [Unknown]
  - Cardiac disorder [Unknown]
  - Colitis [Unknown]
  - Dysstasia [Unknown]
  - Dizziness [Unknown]
  - Feeding disorder [Unknown]
  - Gastric disorder [Unknown]
  - Feeling abnormal [Unknown]
  - COVID-19 [Unknown]
  - Influenza [Unknown]
  - Anosmia [Recovered/Resolved with Sequelae]
  - Ageusia [Recovered/Resolved with Sequelae]
  - Cough [Recovered/Resolved with Sequelae]
  - Fatigue [Unknown]
  - Abdominal discomfort [Recovered/Resolved with Sequelae]
  - Eye allergy [Unknown]
  - Rhinitis allergic [Unknown]
  - Hypersensitivity [Unknown]
  - Onychomadesis [Unknown]
  - Gastrointestinal pain [Unknown]
  - Abdominal distension [Unknown]
  - Pruritus [Unknown]
  - Inflammation [Unknown]
  - Insomnia [Unknown]
  - Alopecia [Unknown]
  - Asthenia [Unknown]
  - Rash [Unknown]
  - Nervousness [Unknown]
  - Vomiting [Unknown]
  - Proctalgia [Unknown]
  - Depressed mood [Unknown]
  - Illness [Unknown]
  - Urinary tract infection [Unknown]
  - Haemoglobin decreased [Unknown]
  - Off label use [Unknown]
  - Swelling [Unknown]

NARRATIVE: CASE EVENT DATE: 20210819
